FAERS Safety Report 7742395-7 (Version None)
Quarter: 2011Q3

REPORT INFORMATION
  Report Type: 
  Country: None (occurrence: None)
  Receive Date: 20110912
  Receipt Date: 20110908
  Transmission Date: 20111222
  Serious: Yes (Other)
  Sender: FDA-Public Use
  Company Number: JP-B.I. PHARMACEUTICALS,INC./RIDGEFIELD-2011-DE-05049GD

PATIENT
  Sex: Female

DRUGS (1)
  1. DABIGATRAN [Suspect]

REACTIONS (1)
  - CEREBRAL INFARCTION [None]
